FAERS Safety Report 9713369 (Version 2)
Quarter: 2013Q4

REPORT INFORMATION
  Report Type: Report from Study
  Country: JP (occurrence: JP)
  Receive Date: 20131126
  Receipt Date: 20131126
  Transmission Date: 20140711
  Serious: Yes (Hospitalization)
  Sender: FDA-Public Use
  Company Number: JP-TEVA-425567USA

PATIENT
  Age: 74 Year
  Sex: Male
  Weight: 60.5 kg

DRUGS (39)
  1. BENDAMUSTINE [Suspect]
     Indication: SPLENIC MARGINAL ZONE LYMPHOMA
     Dosage: UID/QD
     Route: 042
     Dates: start: 20110125, end: 20110126
  2. BENDAMUSTINE [Suspect]
     Dosage: UID/QD
     Route: 042
     Dates: start: 20110222, end: 20110223
  3. BENDAMUSTINE [Suspect]
     Dosage: UID/QD
     Route: 042
     Dates: start: 20110315, end: 20110316
  4. BENDAMUSTINE [Suspect]
     Dosage: UID/QD
     Route: 042
     Dates: start: 20110405, end: 20110406
  5. BENDAMUSTINE [Suspect]
     Dosage: UID/QD
     Route: 042
     Dates: start: 20110426, end: 20110427
  6. BENDAMUSTINE [Suspect]
     Dosage: UID/QD
     Route: 042
     Dates: start: 20110517, end: 20110518
  7. RITUXIMAB [Suspect]
     Dosage: 600MG/BODY DIV
     Dates: start: 2011
  8. RITUXIMAB [Suspect]
     Dates: start: 2011
  9. RITUXIMAB [Suspect]
     Dates: start: 2011
  10. RITUXIMAB [Suspect]
     Dates: start: 2011
  11. RITUXIMAB [Suspect]
     Dates: start: 2011
  12. RITUXIMAB [Suspect]
     Dates: start: 2011
  13. RITUXIMAB [Suspect]
     Dates: start: 2011
  14. RITUXIMAB [Suspect]
     Dates: start: 2011
  15. RITUXIMAB [Suspect]
     Dates: start: 2012
  16. RITUXIMAB [Suspect]
     Dates: start: 20120203
  17. RITUXIMAB [Suspect]
     Dates: start: 20120309
  18. RITUXIMAB [Suspect]
     Dates: start: 20120406
  19. PREDNISOLONE [Suspect]
     Dosage: 60 MG/BODY PO
     Route: 048
     Dates: start: 20100528
  20. DOXORUBICIN NOS [Suspect]
     Dosage: 66 MG/BODY DIV
     Dates: start: 20100528
  21. VINCRISTINE [Suspect]
     Dosage: 1.8 MG/BODY DIV
     Dates: start: 20100528
  22. CYCLOPHOSPHAMIDE [Suspect]
     Dosage: 990MG/BODY DIV
     Dates: start: 20100528
  23. ITRACONAZOLE [Concomitant]
     Dates: start: 20110616
  24. SENNOSIDES A AND B [Concomitant]
     Dates: start: 20110215
  25. OLOPATADINE HYDROCHLORIDE [Concomitant]
     Dates: start: 20110215
  26. BICALUTAMIDE [Concomitant]
     Dates: start: 20110125, end: 20110126
  27. BICALUTAMIDE [Concomitant]
     Dates: start: 20110222, end: 20110223
  28. BICALUTAMIDE [Concomitant]
     Dates: start: 20110315, end: 20110316
  29. BICALUTAMIDE [Concomitant]
     Dates: start: 20110405, end: 20110406
  30. BICALUTAMIDE [Concomitant]
     Dates: start: 20110426, end: 20110427
  31. BICALUTAMIDE [Concomitant]
     Dates: start: 20110517, end: 20110518
  32. RAMOSETRON HYDROCHLORIDE [Concomitant]
     Dates: start: 20110125, end: 20110126
  33. RAMOSETRON HYDROCHLORIDE [Concomitant]
     Dates: start: 20110222, end: 20110223
  34. RAMOSETRON HYDROCHLORIDE [Concomitant]
     Dates: start: 20110315, end: 20110316
  35. RAMOSETRON HYDROCHLORIDE [Concomitant]
     Dates: start: 20110405, end: 20110406
  36. RAMOSETRON HYDROCHLORIDE [Concomitant]
     Dates: start: 20110416, end: 20110417
  37. RAMOSETRON HYDROCHLORIDE [Concomitant]
     Dates: start: 20110517, end: 20110518
  38. FAMCICLOVIR [Concomitant]
     Dates: start: 20110527, end: 20110602
  39. CHARCOAL [Concomitant]
     Dates: start: 20110215

REACTIONS (4)
  - Hodgkin^s disease [Recovering/Resolving]
  - Pyrexia [Recovering/Resolving]
  - Anaemia [Not Recovered/Not Resolved]
  - Herpes virus infection [Recovering/Resolving]
